FAERS Safety Report 16206614 (Version 1)
Quarter: 2019Q2

REPORT INFORMATION
  Report Type: Spontaneous
  Country: LB (occurrence: LB)
  Receive Date: 20190417
  Receipt Date: 20190417
  Transmission Date: 20190711
  Serious: Yes (Other)
  Sender: FDA-Public Use
  Company Number: PHHY2019LB082810

PATIENT
  Age: 6 Year
  Sex: Female

DRUGS (1)
  1. JADENU [Suspect]
     Active Substance: DEFERASIROX
     Indication: PRODUCT USED FOR UNKNOWN INDICATION
     Dosage: HIGHEST APPROVED DOSE OF JADENU (FOR 6 MONTHS NOW)
     Route: 065

REACTIONS (2)
  - Serum ferritin increased [Unknown]
  - Drug ineffective [Unknown]
